FAERS Safety Report 4388138-9 (Version None)
Quarter: 2004Q2

REPORT INFORMATION
  Report Type: 
  Country: None (occurrence: None)
  Receive Date: 20040625
  Receipt Date: 20040615
  Transmission Date: 20050107
  Serious: Yes (Other)
  Sender: FDA-Public Use
  Company Number: HQ4215516SEP2002

PATIENT
  Age: 54 Year
  Sex: Male

DRUGS (12)
  1. RAPAMUNE [Suspect]
     Indication: RENAL TRANSPLANT
     Dosage: SEE IMAGE
     Route: 048
     Dates: start: 20020625, end: 20020717
  2. RAPAMUNE [Suspect]
     Indication: RENAL TRANSPLANT
     Dosage: SEE IMAGE
     Route: 048
     Dates: start: 20020903, end: 20020903
  3. RAPAMUNE [Suspect]
     Indication: RENAL TRANSPLANT
     Dosage: SEE IMAGE
     Route: 048
     Dates: start: 20020904, end: 20020904
  4. RAPAMUNE [Suspect]
     Indication: RENAL TRANSPLANT
     Dosage: SEE IMAGE
     Route: 048
     Dates: start: 20020905, end: 20020905
  5. TACROLIMUS [Concomitant]
  6. PREDNISONE [Concomitant]
  7. AVANDIA [Concomitant]
  8. MYCOPHENOLATE MOFETIL [Concomitant]
  9. INSULIN HUMAN 70/30 (INSULIN HUMAN/INSULIN HUMAN INJECTION, ISOPHANE) [Concomitant]
  10. FUROSEMIDE [Concomitant]
  11. METOPROLOL TARTRATE [Concomitant]
  12. MINOXIDIL [Concomitant]

REACTIONS (7)
  - ANGIONEUROTIC OEDEMA [None]
  - COMPLICATIONS OF TRANSPLANTED KIDNEY [None]
  - DIALYSIS [None]
  - IMMUNOSUPPRESSANT DRUG LEVEL DECREASED [None]
  - PNEUMONIA [None]
  - RENAL TUBULAR NECROSIS [None]
  - THROMBOCYTOPENIA [None]
